FAERS Safety Report 13948174 (Version 1)
Quarter: 2017Q3

REPORT INFORMATION
  Report Type: Spontaneous
  Country: JP (occurrence: JP)
  Receive Date: 20170908
  Receipt Date: 20170908
  Transmission Date: 20171128
  Serious: Yes (Death, Other)
  Sender: FDA-Public Use
  Company Number: JP-ACCORD-058150

PATIENT
  Age: 50 Year
  Sex: Male

DRUGS (1)
  1. GEMCITABINE/GEMCITABINE HYDROCHLORIDE [Suspect]
     Active Substance: GEMCITABINE\GEMCITABINE HYDROCHLORIDE
     Indication: PANCREATIC CARCINOMA METASTATIC
     Dosage: EIGHTY PERCENT DOSE OF GEMCITBINE WAS ADMINISTERED IN THE AFTERNOON BIWEEKLY
     Dates: end: 201411

REACTIONS (2)
  - Cholangitis [Unknown]
  - Leukopenia [Unknown]
